FAERS Safety Report 8776053 (Version 1)
Quarter: 2012Q4

REPORT INFORMATION
  Report Type: 
  Country: CA (occurrence: CA)
  Receive Date: 20120910
  Receipt Date: 20120910
  Transmission Date: 20130627
  Serious: Yes (Hospitalization)
  Sender: FDA-Public Use
  Company Number: CA-009507513-1209CAN002934

PATIENT

DRUGS (1)
  1. EZETIMIBE [Suspect]
     Indication: PRODUCT USED FOR UNKNOWN INDICATION
     Dosage: 10 mg, UNK
     Route: 048

REACTIONS (2)
  - Liver disorder [Not Recovered/Not Resolved]
  - Pneumonia [Not Recovered/Not Resolved]
